FAERS Safety Report 4429021-X (Version None)
Quarter: 2004Q3

REPORT INFORMATION
  Report Type: 
  Country: None (occurrence: None)
  Receive Date: 20040726
  Receipt Date: 20040108
  Transmission Date: 20050211
  Serious: No
  Sender: FDA-Public Use
  Company Number: USA040156163

PATIENT
  Age: 55 Year
  Sex: Female

DRUGS (1)
  1. FORTEO [Suspect]

REACTIONS (3)
  - BONE PAIN [None]
  - CONTUSION [None]
  - SKELETAL INJURY [None]
